FAERS Safety Report 22181077 (Version 1)
Quarter: 2023Q2

REPORT INFORMATION
  Report Type: Spontaneous
  Country: US (occurrence: None)
  Receive Date: 20230405
  Receipt Date: 20230405
  Transmission Date: 20230721
  Serious: Yes (Life-Threatening)
  Sender: FDA-Public Use
  Company Number: None

PATIENT
  Age: 56 Year
  Sex: Male
  Weight: 103.9 kg

DRUGS (1)
  1. LUMASON [Suspect]
     Active Substance: SULFUR HEXAFLUORIDE
     Indication: Echocardiogram
     Dosage: OTHER FREQUENCY : 1 DOSE;?
     Route: 042
     Dates: start: 20230327, end: 20230327

REACTIONS (5)
  - Contrast media reaction [None]
  - Cardio-respiratory arrest [None]
  - Hyperhidrosis [None]
  - Agonal respiration [None]
  - Ventricular tachycardia [None]

NARRATIVE: CASE EVENT DATE: 20230327
